FAERS Safety Report 23130696 (Version 1)
Quarter: 2023Q4

REPORT INFORMATION
  Report Type: Spontaneous
  Country: US (occurrence: None)
  Receive Date: 20231026
  Receipt Date: 20231026
  Transmission Date: 20240109
  Serious: Yes (Hospitalization)
  Sender: FDA-Public Use
  Company Number: None

PATIENT
  Age: 28 Year
  Sex: Male
  Weight: 67.5 kg

DRUGS (3)
  1. BPC-157 [Suspect]
     Active Substance: BPC-157
     Indication: Injury
     Route: 058
     Dates: start: 20231015, end: 20231016
  2. BPC-157 [Suspect]
     Active Substance: BPC-157
     Indication: Inflammation
  3. HEART MONITOR [Concomitant]

REACTIONS (1)
  - Dyspnoea [None]

NARRATIVE: CASE EVENT DATE: 20231015
